FAERS Safety Report 14018436 (Version 1)
Quarter: 2017Q3

REPORT INFORMATION
  Report Type: Spontaneous
  Country: US (occurrence: US)
  Receive Date: 20170928
  Receipt Date: 20170928
  Transmission Date: 20171128
  Serious: No
  Sender: FDA-Public Use
  Company Number: US-TEVA-688435USA

PATIENT
  Age: 68 Year
  Sex: Male

DRUGS (3)
  1. HORIZANT [Suspect]
     Active Substance: GABAPENTIN ENACARBIL
     Indication: RESTLESS LEGS SYNDROME
     Dosage: 300 MILLIGRAM DAILY;
     Route: 048
     Dates: start: 20160407, end: 20160527
  2. HORIZANT [Suspect]
     Active Substance: GABAPENTIN ENACARBIL
     Route: 048
     Dates: start: 20160727
  3. GABAPENTIN. [Suspect]
     Active Substance: GABAPENTIN
     Route: 065

REACTIONS (13)
  - Headache [Recovered/Resolved]
  - Rash [Recovered/Resolved]
  - Somnolence [Unknown]
  - Dysuria [Recovered/Resolved]
  - Muscular weakness [Recovered/Resolved]
  - Anxiety [Recovered/Resolved]
  - Dysphonia [Unknown]
  - Pain [Recovered/Resolved]
  - Decreased appetite [Recovered/Resolved]
  - Physical disability [Recovered/Resolved]
  - Weight increased [Recovered/Resolved]
  - Insomnia [Recovered/Resolved]
  - Urinary incontinence [Recovered/Resolved]

NARRATIVE: CASE EVENT DATE: 2016
